FAERS Safety Report 16514463 (Version 1)
Quarter: 2019Q3

REPORT INFORMATION
  Report Type: Report from Study
  Country: IT (occurrence: IT)
  Receive Date: 20190702
  Receipt Date: 20190702
  Transmission Date: 20191004
  Serious: Yes (Hospitalization)
  Sender: FDA-Public Use
  Company Number: IT-PFIZER INC-2019274722

PATIENT
  Age: 8 Year
  Sex: Male
  Weight: 57 kg

DRUGS (22)
  1. IFOSFAMIDE. [Suspect]
     Active Substance: IFOSFAMIDE
     Indication: BURKITT^S LYMPHOMA
     Dosage: 1224 MG, CYCLIC
     Route: 042
     Dates: start: 20181116, end: 20181120
  2. DECADRON [Concomitant]
     Active Substance: DEXAMETHASONE
     Dosage: 7.5 MG, UNK
     Route: 048
     Dates: start: 20181121, end: 20181122
  3. DECADRON [Concomitant]
     Active Substance: DEXAMETHASONE
     Dosage: 3.75 MG, UNK
     Dates: start: 20181123, end: 20181124
  4. DECADRON [Concomitant]
     Active Substance: DEXAMETHASONE
     Dosage: 1.5 MG, UNK
     Dates: start: 20181125, end: 20181126
  5. CIPROXIN [CIPROFLOXACIN HYDROCHLORIDE] [Concomitant]
     Active Substance: CIPROFLOXACIN HYDROCHLORIDE
     Dosage: 1000 MG, UNK
     Dates: start: 20181107
  6. BACTRIM [Concomitant]
     Active Substance: SULFAMETHOXAZOLE\TRIMETHOPRIM
     Dosage: 2 DF, UNK
     Route: 048
     Dates: end: 20181208
  7. MABTHERA [Suspect]
     Active Substance: RITUXIMAB
     Indication: BURKITT^S LYMPHOMA
     Dosage: 555 MG, UNK
     Dates: start: 20181001, end: 20181001
  8. ANTRA [OMEPRAZOLE] [Concomitant]
     Active Substance: OMEPRAZOLE
     Dosage: 40 MG, UNK
     Route: 048
  9. ETOPOSIDE. [Suspect]
     Active Substance: ETOPOSIDE
     Indication: BURKITT^S LYMPHOMA
     Dosage: 153 MG, CYCLIC
     Route: 042
     Dates: start: 20181119, end: 20181120
  10. MYCOSTATIN [Concomitant]
     Active Substance: NYSTATIN
     Dosage: 15 ML, UNK
     Route: 048
  11. CYTARABINE. [Suspect]
     Active Substance: CYTARABINE
     Dosage: 459 MG, CYCLIC
     Route: 042
     Dates: start: 20181119, end: 20181120
  12. MABTHERA [Suspect]
     Active Substance: RITUXIMAB
     Dosage: 574 MG, CYCLIC
     Route: 042
     Dates: start: 20181001, end: 20181209
  13. METHOTREXATE SODIUM. [Suspect]
     Active Substance: METHOTREXATE SODIUM
     Indication: BURKITT^S LYMPHOMA
     Dosage: 12 MG, CYCLIC
     Route: 037
     Dates: start: 20180925, end: 20181210
  14. VINCRISTINE SULFATE. [Suspect]
     Active Substance: VINCRISTINE SULFATE
     Indication: BURKITT^S LYMPHOMA
     Dosage: 2 MG, CYCLIC
     Route: 042
     Dates: start: 20181002, end: 20181210
  15. UROMITEXAN [Concomitant]
     Active Substance: MESNA
     Indication: BURKITT^S LYMPHOMA
     Dosage: 920 MG, UNK
     Route: 042
     Dates: start: 20181116, end: 20181120
  16. ZOFRAN [Concomitant]
     Active Substance: ONDANSETRON HYDROCHLORIDE
     Dosage: 16 MG, UNK
     Route: 042
     Dates: start: 20181116, end: 20181120
  17. METHOTREXATE SODIUM. [Suspect]
     Active Substance: METHOTREXATE SODIUM
     Dosage: 1530 MG, CYCLIC
     Route: 042
     Dates: start: 20181116, end: 20181210
  18. DECADRON [Concomitant]
     Active Substance: DEXAMETHASONE
     Dosage: 15.3 MG, UNK
     Route: 042
     Dates: start: 20181116, end: 20181120
  19. CYTARABINE. [Suspect]
     Active Substance: CYTARABINE
     Indication: BURKITT^S LYMPHOMA
     Dosage: 30 MG, CYCLIC
     Route: 037
     Dates: start: 20180925, end: 20181210
  20. MABTHERA [Suspect]
     Active Substance: RITUXIMAB
     Dosage: 525 MG, UNK
     Dates: start: 20181023, end: 20181023
  21. URBASON [METHYLPREDNISOLONE] [Concomitant]
     Active Substance: METHYLPREDNISOLONE
     Dosage: 10 MG, UNK
     Route: 037
     Dates: start: 20180925, end: 20181210
  22. LASIX [Concomitant]
     Active Substance: FUROSEMIDE
     Dosage: 28 MG, UNK
     Route: 042
     Dates: start: 20181116, end: 20181116

REACTIONS (1)
  - Aplasia [Recovered/Resolved]

NARRATIVE: CASE EVENT DATE: 20181126
